FAERS Safety Report 23234791 (Version 1)
Quarter: 2023Q4

REPORT INFORMATION
  Report Type: Spontaneous
  Country: US (occurrence: None)
  Receive Date: 20231128
  Receipt Date: 20231128
  Transmission Date: 20240109
  Serious: No
  Sender: FDA-Public Use
  Company Number: None

PATIENT
  Age: 14 Year
  Sex: Female
  Weight: 43 kg

DRUGS (3)
  1. CYCLOPHOSPHAMIDE [Suspect]
     Active Substance: CYCLOPHOSPHAMIDE
  2. DACTINOMYCIN [Suspect]
     Active Substance: DACTINOMYCIN
  3. VINCRISTINE SULFATE [Suspect]
     Active Substance: VINCRISTINE SULFATE
     Dates: end: 20230525

REACTIONS (2)
  - Peripheral motor neuropathy [None]
  - Therapy interrupted [None]

NARRATIVE: CASE EVENT DATE: 20230601
